FAERS Safety Report 15284959 (Version 1)
Quarter: 2018Q3

REPORT INFORMATION
  Report Type: Spontaneous
  Country: US (occurrence: US)
  Receive Date: 20180802
  Receipt Date: 20180802
  Transmission Date: 20181010
  Serious: Yes (Other)
  Sender: FDA-Public Use
  Company Number: None

PATIENT
  Age: 48 Year
  Sex: Male

DRUGS (2)
  1. CIPROFLOXACIN. [Concomitant]
     Active Substance: CIPROFLOXACIN
  2. REPATHA [Suspect]
     Active Substance: EVOLOCUMAB

REACTIONS (4)
  - Dyspnoea [None]
  - Bone pain [None]
  - Arthralgia [None]
  - Rhinorrhoea [None]

NARRATIVE: CASE EVENT DATE: 20180724
